FAERS Safety Report 4665645-2 (Version None)
Quarter: 2005Q2

REPORT INFORMATION
  Report Type: 
  Country: None (occurrence: None)
  Receive Date: 20050517
  Receipt Date: 20050502
  Transmission Date: 20051028
  Serious: Yes (Hospitalization)
  Sender: FDA-Public Use
  Company Number: US_0505116912

PATIENT
  Age: 12 Year
  Sex: Female

DRUGS (2)
  1. STRATTERA [Suspect]
  2. TENEX [Concomitant]

REACTIONS (2)
  - DRUG INTERACTION [None]
  - ORTHOSTATIC HYPOTENSION [None]
